FAERS Safety Report 9049506 (Version 2)
Quarter: 2013Q1

REPORT INFORMATION
  Report Type: Spontaneous
  Country: US (occurrence: US)
  Receive Date: 20130205
  Receipt Date: 20130311
  Transmission Date: 20140127
  Serious: Yes (Hospitalization)
  Sender: FDA-Public Use
  Company Number: US-FRI-1000042324

PATIENT
  Age: 47 Year
  Sex: Male

DRUGS (3)
  1. VIIBRYD [Suspect]
     Indication: DEPRESSION
     Dosage: 10 MG
     Route: 048
     Dates: start: 20121128, end: 20121204
  2. VIIBRYD [Suspect]
     Dosage: 20 MG
     Route: 048
     Dates: start: 20121205, end: 20121211
  3. VIIBRYD [Suspect]
     Dosage: 40 MG
     Route: 048
     Dates: start: 20121212

REACTIONS (4)
  - Chest pain [Recovered/Resolved]
  - Blood pressure increased [Recovered/Resolved]
  - Gastritis [Recovering/Resolving]
  - Duodenitis [Recovering/Resolving]
